FAERS Safety Report 11713808 (Version 1)
Quarter: 2015Q4

REPORT INFORMATION
  Report Type: Spontaneous
  Country: DE (occurrence: DE)
  Receive Date: 20151109
  Receipt Date: 20151109
  Transmission Date: 20160304
  Serious: Yes (Hospitalization)
  Sender: FDA-Public Use
  Company Number: DE-SHIRE-DE201513631

PATIENT
  Age: 84 Year
  Sex: Female

DRUGS (1)
  1. XAGRID [Suspect]
     Active Substance: ANAGRELIDE HYDROCHLORIDE
     Indication: THROMBOCYTOSIS
     Dosage: UNK, UNKNOWN
     Route: 048

REACTIONS (1)
  - Haemorrhoids [Unknown]
